FAERS Safety Report 23266018 (Version 4)
Quarter: 2024Q1

REPORT INFORMATION
  Report Type: Report from Study
  Country: US (occurrence: US)
  Receive Date: 20231206
  Receipt Date: 20240315
  Transmission Date: 20240410
  Serious: No
  Sender: FDA-Public Use
  Company Number: US-ACADIA PHARMACEUTICALS INC.-ACA-2023-TRF-005213

PATIENT
  Age: 25 Year
  Sex: Female
  Weight: 32 kg

DRUGS (12)
  1. DAYBUE [Suspect]
     Active Substance: TROFINETIDE
     Indication: Rett syndrome
     Dosage: 40 MILLILITER, BID
     Route: 048
  2. DAYBUE [Suspect]
     Active Substance: TROFINETIDE
     Dosage: 40 MILLILITER, BID
     Route: 048
     Dates: start: 20231115, end: 20231129
  3. DAYBUE [Suspect]
     Active Substance: TROFINETIDE
     Dosage: 20 MILLILITER, BID
     Route: 048
  4. ZONISAMIDE [Concomitant]
     Active Substance: ZONISAMIDE
     Dosage: 100 MILLIGRAM, BID
     Route: 048
  5. LAMOTRIGINE [Concomitant]
     Active Substance: LAMOTRIGINE
     Dosage: 200 MILLIGRAM, BID
     Route: 048
     Dates: start: 2019
  6. LORAZEPAM [Concomitant]
     Active Substance: LORAZEPAM
     Indication: Seizure
     Dosage: TAKE ONE ML (2 MG/ML) FOR SEIZURE AS NEEDED. MAX 2 ML PER 24 HOURS 6 ML PER WEEK
     Route: 048
  7. FOLIC ACID [Concomitant]
     Active Substance: FOLIC ACID
     Dosage: 1 MILLIGRAM, QD
     Route: 048
  8. TRILEPTAL [Concomitant]
     Active Substance: OXCARBAZEPINE
  9. OXCARBAZEPINE [Concomitant]
     Active Substance: OXCARBAZEPINE
     Dosage: 12.5 ML BID
     Route: 048
     Dates: start: 2007
  10. FERROUS SULFATE [Concomitant]
     Active Substance: FERROUS SULFATE
  11. CANNABIDIOL\HERBALS [Concomitant]
     Active Substance: CANNABIDIOL\HERBALS
  12. CHEM 7 [Concomitant]

REACTIONS (12)
  - Prescribed underdose [Recovered/Resolved]
  - Lethargy [Not Recovered/Not Resolved]
  - Insomnia [Not Recovered/Not Resolved]
  - Insomnia [Recovered/Resolved]
  - Retching [Recovered/Resolved]
  - Lethargy [Recovered/Resolved]
  - Lethargy [Recovered/Resolved]
  - Gait inability [Recovered/Resolved]
  - Insomnia [Recovered/Resolved]
  - Decreased appetite [Not Recovered/Not Resolved]
  - Decreased appetite [Recovered/Resolved]
  - Decreased appetite [Recovered/Resolved]

NARRATIVE: CASE EVENT DATE: 20231101
